FAERS Safety Report 4798407-6 (Version None)
Quarter: 2005Q4

REPORT INFORMATION
  Report Type: 
  Country: None (occurrence: None)
  Receive Date: 20051014
  Receipt Date: 20050930
  Transmission Date: 20060501
  Serious: Yes (Hospitalization)
  Sender: FDA-Public Use
  Company Number: US-KINGPHARMUSA00001-K200501277

PATIENT
  Age: 66 Year
  Sex: Female

DRUGS (10)
  1. ALTACE [Suspect]
     Dosage: 2 U, QD
     Route: 048
     Dates: end: 20050123
  2. LASILIX [Suspect]
     Dosage: 80 MG, QD
     Route: 048
     Dates: end: 20050123
  3. ALDACTONE [Suspect]
     Dosage: 50 MG, QD
     Route: 048
     Dates: end: 20050123
  4. MORPHINE [Concomitant]
     Route: 042
     Dates: start: 20050117
  5. NITROGLYCERIN [Concomitant]
     Dosage: 1 U, UNK
     Route: 003
  6. KARDEGIC  /FRA/ [Concomitant]
     Dosage: 1 U, UNK
     Route: 048
  7. TOPALGIC ^HOUDE^ [Concomitant]
     Dosage: 200 MG, UNK
     Route: 048
  8. INSULATARD NPH HUMAN [Concomitant]
     Route: 058
  9. DOLIPRANE [Concomitant]
     Dosage: 3000 MG, UNK
     Route: 048
  10. ATARAX [Concomitant]
     Dosage: 25 MG, UNK
     Route: 048

REACTIONS (7)
  - BRADYPNOEA [None]
  - DEHYDRATION [None]
  - INCREASED BRONCHIAL SECRETION [None]
  - OVERDOSE [None]
  - RENAL FAILURE ACUTE [None]
  - SOMNOLENCE [None]
  - TOXIC EPIDERMAL NECROLYSIS [None]
